FAERS Safety Report 16029481 (Version 3)
Quarter: 2019Q2

REPORT INFORMATION
  Report Type: Spontaneous
  Country: US (occurrence: US)
  Receive Date: 20190304
  Receipt Date: 20190521
  Transmission Date: 20190711
  Serious: No
  Sender: FDA-Public Use
  Company Number: US-SA-2019SA059551

PATIENT
  Age: 46 Year
  Sex: Female

DRUGS (2)
  1. DUPIXENT [Suspect]
     Active Substance: DUPILUMAB
     Indication: DERMATITIS ATOPIC
     Dosage: 2 DF, QOW
     Route: 058
     Dates: start: 20190221
  2. DUPIXENT [Suspect]
     Active Substance: DUPILUMAB
     Dosage: UNK

REACTIONS (6)
  - Erythema [Unknown]
  - Product dose omission [Unknown]
  - Injection site reaction [Unknown]
  - Eczema [Unknown]
  - Product use issue [Unknown]
  - Rash [Unknown]

NARRATIVE: CASE EVENT DATE: 20190321
